FAERS Safety Report 4337399-0 (Version None)
Quarter: 2004Q1

REPORT INFORMATION
  Report Type: 
  Country: None (occurrence: None)
  Receive Date: 20040329
  Receipt Date: 20040120
  Transmission Date: 20041129
  Serious: No
  Sender: FDA-Public Use
  Company Number: USA040157035

PATIENT
  Age: 8 Year
  Sex: Male
  Weight: 39 kg

DRUGS (2)
  1. STRATTERA [Suspect]
     Indication: ATTENTION DEFICIT/HYPERACTIVITY DISORDER
     Dosage: 60 MG
     Dates: start: 20030101
  2. CENTRUM [Concomitant]

REACTIONS (5)
  - FATIGUE [None]
  - FEELING ABNORMAL [None]
  - LETHARGY [None]
  - NAUSEA [None]
  - PRESCRIBED OVERDOSE [None]
